FAERS Safety Report 20940068 (Version 1)
Quarter: 2022Q2

REPORT INFORMATION
  Report Type: Spontaneous
  Country: US (occurrence: None)
  Receive Date: 20220608
  Receipt Date: 20220608
  Transmission Date: 20220721
  Serious: No
  Sender: FDA-Public Use
  Company Number: None

PATIENT
  Age: 49 Year
  Sex: Male
  Weight: 78.5 kg

DRUGS (2)
  1. FENTANYL [Suspect]
     Active Substance: FENTANYL
  2. Baxter Spectrum IQ Pump [Concomitant]

REACTIONS (3)
  - Drug delivery system malfunction [None]
  - Agitation [None]
  - Discomfort [None]

NARRATIVE: CASE EVENT DATE: 20220531
